FAERS Safety Report 6098584-3 (Version None)
Quarter: 2009Q1

REPORT INFORMATION
  Report Type: 
  Country: None (occurrence: None)
  Receive Date: 20090302
  Receipt Date: 20090220
  Transmission Date: 20090719
  Serious: Yes (Other)
  Sender: FDA-Public Use
  Company Number: US-CELGENEUS-163-20785-09021495

PATIENT

DRUGS (2)
  1. THALOMID [Suspect]
     Indication: MALIGNANT MELANOMA
     Dosage: 50MG/D, ESCALATED TO A MAX OF 400MG/D FOLLOWED BY 14 DAYS OF REST
     Route: 048
  2. GM-CSF [Suspect]
     Indication: MALIGNANT MELANOMA
     Route: 058

REACTIONS (2)
  - ABDOMINAL ABSCESS [None]
  - APPENDICECTOMY [None]
